FAERS Safety Report 5733132-6 (Version None)
Quarter: 2008Q2

REPORT INFORMATION
  Report Type: 
  Country: None (occurrence: None)
  Receive Date: 20080509
  Receipt Date: 20080429
  Transmission Date: 20081010
  Serious: Yes (Hospitalization, Other)
  Sender: FDA-Public Use
  Company Number: US-ROCHE-527494

PATIENT
  Sex: Male
  Weight: 70.8 kg

DRUGS (2)
  1. ACCUTANE [Suspect]
     Route: 065
     Dates: start: 19940708, end: 19940711
  2. ACCUTANE [Suspect]
     Route: 065
     Dates: start: 19940805, end: 19950519

REACTIONS (8)
  - ANAL FISTULA [None]
  - APPENDICECTOMY [None]
  - CHOLECYSTITIS ACUTE [None]
  - COLITIS [None]
  - CROHN'S DISEASE [None]
  - GASTROOESOPHAGEAL REFLUX DISEASE [None]
  - HELICOBACTER INFECTION [None]
  - INFLAMMATORY BOWEL DISEASE [None]
